FAERS Safety Report 4592071-7 (Version None)
Quarter: 2005Q1

REPORT INFORMATION
  Report Type: 
  Country: None (occurrence: None)
  Receive Date: 20050125
  Receipt Date: 20041115
  Transmission Date: 20050727
  Serious: No
  Sender: FDA-Public Use
  Company Number: USA040464273

PATIENT
  Age: 73 Year
  Sex: Female
  Weight: 66 kg

DRUGS (4)
  1. FORTEO [Suspect]
     Indication: OSTEOPOROSIS
     Dosage: 20 UG DAY
     Dates: start: 20040209
  2. CALCIUM CARBONATE [Concomitant]
  3. CLARITIN-D [Concomitant]
  4. LORATADINE [Concomitant]

REACTIONS (13)
  - ABDOMINAL DISCOMFORT [None]
  - CONSTIPATION [None]
  - DIZZINESS [None]
  - ERUCTATION [None]
  - GASTROOESOPHAGEAL REFLUX DISEASE [None]
  - HEADACHE [None]
  - LOCALISED INFECTION [None]
  - NAIL OPERATION [None]
  - NASAL CONGESTION [None]
  - NAUSEA [None]
  - OESOPHAGEAL DISORDER [None]
  - ONYCHOMYCOSIS [None]
  - WEIGHT DECREASED [None]
